FAERS Safety Report 15328922 (Version 3)
Quarter: 2018Q3

REPORT INFORMATION
  Report Type: Spontaneous
  Country: CA (occurrence: CA)
  Receive Date: 20180829
  Receipt Date: 20180925
  Transmission Date: 20181010
  Serious: Yes (Other)
  Sender: FDA-Public Use
  Company Number: CA-CELLTRION INC.-2017CA014411

PATIENT

DRUGS (19)
  1. INFLECTRA [Suspect]
     Active Substance: INFLIXIMAB-DYYB
     Indication: COLITIS ULCERATIVE
     Dosage: 5 MG/KG, CYCLIC (EVERY 8 WEEKS)
     Route: 042
     Dates: start: 201707
  2. IMURAN [Concomitant]
     Active Substance: AZATHIOPRINE
     Dosage: 75 MG, (2 MG/KG)
     Route: 048
     Dates: start: 201707
  3. INFLECTRA [Suspect]
     Active Substance: INFLIXIMAB-DYYB
     Dosage: 350 MG,  (THEN EVERY 4 WEEKS)
     Route: 042
     Dates: start: 20180818
  4. INFLECTRA [Suspect]
     Active Substance: INFLIXIMAB-DYYB
     Dosage: 350 MG , THEN EVERY 6 WEEKS
     Route: 042
  5. INFLECTRA [Suspect]
     Active Substance: INFLIXIMAB-DYYB
     Dosage: 175 MG CYCLIC (AT 0,2,6 WEEKS, THEN EVERY 8 WEEKS)
     Route: 042
     Dates: start: 20170823
  6. INFLECTRA [Suspect]
     Active Substance: INFLIXIMAB-DYYB
     Dosage: 350 MG , THEN EVERY 6 WEEKS
     Route: 042
     Dates: start: 20171230
  7. INFLECTRA [Suspect]
     Active Substance: INFLIXIMAB-DYYB
     Dosage: 350 MG, (THEN EVERY 4 WEEKS)
     Route: 042
     Dates: start: 20180714
  8. INFLECTRA [Suspect]
     Active Substance: INFLIXIMAB-DYYB
     Dosage: 175 MG, CYCLIC (AT 0,2,6 WEEKS, THEN EVERY 8 WEEKS);
     Dates: start: 20170908
  9. INFLECTRA [Suspect]
     Active Substance: INFLIXIMAB-DYYB
     Dosage: 175 MG, CYCLIC (AT 0,2,6 WEEKS, THEN EVERY 8 WEEKS);
     Dates: start: 20171006
  10. INFLECTRA [Suspect]
     Active Substance: INFLIXIMAB-DYYB
     Dosage: 350 MG , THEN EVERY 6 WEEKS
     Route: 042
     Dates: start: 20170823, end: 20180210
  11. INFLECTRA [Suspect]
     Active Substance: INFLIXIMAB-DYYB
     Dosage: 175 MG, CYCLIC (AT 0,2,6 WEEKS, THEN EVERY 8 WEEKS)
     Route: 042
     Dates: start: 20171202
  12. INFLECTRA [Suspect]
     Active Substance: INFLIXIMAB-DYYB
     Dosage: 175 MG, CYCLIC (AT 0,2,6 WEEKS, THEN EVERY 8 WEEKS)
     Route: 042
  13. INFLECTRA [Suspect]
     Active Substance: INFLIXIMAB-DYYB
     Dosage: 350 MG RESCUE DOSE
     Route: 042
     Dates: start: 20171202
  14. INFLECTRA [Suspect]
     Active Substance: INFLIXIMAB-DYYB
     Dosage: 10 MG/KG, CYCLIC EVERY 6 WEEKS
     Route: 042
  15. INFLECTRA [Suspect]
     Active Substance: INFLIXIMAB-DYYB
     Dosage: 10 MG/KG, CYCLIC, EVERY 4 WEEKS
     Route: 042
  16. INFLECTRA [Suspect]
     Active Substance: INFLIXIMAB-DYYB
     Dosage: 350 MG, THEN EVERY 4 WEEKS)
     Route: 042
     Dates: start: 20180324
  17. INFLECTRA [Suspect]
     Active Substance: INFLIXIMAB-DYYB
     Dosage: 350 MG,  (THEN EVERY 6 WEEKS)
     Route: 042
     Dates: start: 20180519
  18. FERAMAX [Concomitant]
     Active Substance: IRON\POLYSACCHARIDES
     Dosage: 150 MG, DAILY
     Route: 048
     Dates: start: 201701
  19. PREDNISONE. [Concomitant]
     Active Substance: PREDNISONE
     Dosage: 8 DF, DAILY (TAPERED DOSE)
     Route: 065
     Dates: start: 201704

REACTIONS (7)
  - Acne [Unknown]
  - Blood pressure fluctuation [Unknown]
  - Drug level below therapeutic [Unknown]
  - Condition aggravated [Not Recovered/Not Resolved]
  - Heart rate irregular [Unknown]
  - Product use issue [Recovering/Resolving]
  - Drug effect incomplete [Not Recovered/Not Resolved]

NARRATIVE: CASE EVENT DATE: 20171006
